FAERS Safety Report 7589634-3 (Version None)
Quarter: 2011Q3

REPORT INFORMATION
  Report Type: 
  Country: None (occurrence: None)
  Receive Date: 20110705
  Receipt Date: 20110629
  Transmission Date: 20111222
  Serious: Yes (Other)
  Sender: FDA-Public Use
  Company Number: JP-PFIZER INC-2011145874

PATIENT
  Age: 77 Year
  Sex: Female

DRUGS (4)
  1. BONALON [Concomitant]
     Dosage: UNK
  2. LYRICA [Suspect]
     Indication: FIBROMYALGIA
     Dosage: 100 MG DAILY
     Route: 048
     Dates: start: 20110614, end: 20110626
  3. CYMBALTA [Concomitant]
     Dosage: UNK
  4. TOLEDOMIN [Concomitant]
     Dosage: UNK

REACTIONS (6)
  - MALAISE [None]
  - DIPLOPIA [None]
  - DRUG INEFFECTIVE [None]
  - GAIT DISTURBANCE [None]
  - DIZZINESS [None]
  - ALTERED STATE OF CONSCIOUSNESS [None]
